FAERS Safety Report 10360458 (Version 1)
Quarter: 2014Q3

REPORT INFORMATION
  Report Type: Spontaneous
  Country: US (occurrence: US)
  Receive Date: 20140804
  Receipt Date: 20140804
  Transmission Date: 20150326
  Serious: Yes (Hospitalization)
  Sender: FDA-Public Use
  Company Number: PHHY2014US093743

PATIENT
  Age: 41 Year
  Sex: Female

DRUGS (3)
  1. METOPROLOL [Suspect]
     Active Substance: METOPROLOL
  2. VERAPAMIL [Suspect]
     Active Substance: VERAPAMIL HYDROCHLORIDE
  3. IMMUNOGLOBULIN I.V [Concomitant]
     Active Substance: HUMAN IMMUNOGLOBULIN G
     Route: 042

REACTIONS (6)
  - Drug abuse [Unknown]
  - Bradycardia [Unknown]
  - Factitious disorder [Unknown]
  - Munchausen^s syndrome [Unknown]
  - Hypotension [Unknown]
  - Drug level increased [Unknown]
